FAERS Safety Report 26064662 (Version 1)
Quarter: 2025Q4

REPORT INFORMATION
  Report Type: Spontaneous
  Country: US (occurrence: None)
  Receive Date: 20251118
  Receipt Date: 20251118
  Transmission Date: 20260118
  Serious: Yes (Other)
  Sender: FDA-CTU
  Company Number: None

PATIENT
  Age: 58 Year
  Sex: Male
  Weight: 78.75 kg

DRUGS (6)
  1. HAIR REGROWTH TREATMENT FOR MEN [Suspect]
     Active Substance: MINOXIDIL
     Indication: Alopecia
     Dosage: OTHER QUANTITY : 1 HALF CAPFUL?FREQUENCY : TWICE A DAY?OTHER ROUTE : APLLD TO COLD SURFACE/RUBBED INTO SCALP?
     Route: 050
     Dates: start: 20251109, end: 20251110
  2. TAMSULOSIN HYDROCHLORIDE [Concomitant]
     Active Substance: TAMSULOSIN HYDROCHLORIDE
  3. GABAPENTIN [Concomitant]
     Active Substance: GABAPENTIN
  4. BACLOFEN [Concomitant]
     Active Substance: BACLOFEN
  5. ESCITALOPRAM OXALATE [Concomitant]
     Active Substance: ESCITALOPRAM OXALATE
  6. ESCITALOPRAM [Concomitant]
     Active Substance: ESCITALOPRAM OXALATE

REACTIONS (6)
  - Pain of skin [None]
  - Application site pain [None]
  - Eye swelling [None]
  - Scar [None]
  - Vision blurred [None]
  - Chemical burn of skin [None]

NARRATIVE: CASE EVENT DATE: 20251109
